FAERS Safety Report 12920896 (Version 1)
Quarter: 2016Q4

REPORT INFORMATION
  Report Type: Spontaneous
  Country: US (occurrence: US)
  Receive Date: 20161107
  Receipt Date: 20161107
  Transmission Date: 20170207
  Serious: Yes (Disabling)
  Sender: FDA-Public Use
  Company Number: None

PATIENT
  Age: 41 Year
  Sex: Female
  Weight: 54 kg

DRUGS (1)
  1. CLARAVIS [Suspect]
     Active Substance: ISOTRETINOIN
     Indication: ACNE
     Route: 048

REACTIONS (17)
  - Hair texture abnormal [None]
  - Alopecia [None]
  - Back pain [None]
  - Dry skin [None]
  - Visual acuity reduced [None]
  - Arthralgia [None]
  - Myalgia [None]
  - Arthropathy [None]
  - Deafness [None]
  - Dyspepsia [None]
  - Premature ageing [None]
  - Skin atrophy [None]
  - Skin hypopigmentation [None]
  - Tinnitus [None]
  - Headache [None]
  - Hormone level abnormal [None]
  - Depression [None]

NARRATIVE: CASE EVENT DATE: 20100111
